FAERS Safety Report 7063443-6 (Version None)
Quarter: 2010Q4

REPORT INFORMATION
  Report Type: 
  Country: None (occurrence: None)
  Receive Date: 20101026
  Receipt Date: 20100201
  Transmission Date: 20110411
  Serious: No
  Sender: FDA-Public Use
  Company Number: US-ABBOTT-10P-163-0623828-00

PATIENT
  Sex: Female
  Weight: 72.64 kg

DRUGS (3)
  1. LUPRON DEPOT [Suspect]
     Indication: ENDOMETRIOSIS
     Dosage: 150MG? MONTHLY
     Route: 050
     Dates: start: 20091001
  2. AYGESTIN [Concomitant]
     Indication: PRODUCT USED FOR UNKNOWN INDICATION
  3. ELAVIL [Concomitant]
     Indication: PRODUCT USED FOR UNKNOWN INDICATION
     Route: 048

REACTIONS (1)
  - ALOPECIA [None]
